FAERS Safety Report 5238742-0 (Version None)
Quarter: 2007Q1

REPORT INFORMATION
  Report Type: 
  Country: None (occurrence: None)
  Receive Date: 20070215
  Receipt Date: 20070209
  Transmission Date: 20070707
  Serious: Yes (Death, Hospitalization)
  Sender: FDA-Public Use
  Company Number: US-SANOFI-SYNTHELABO-F01200700192

PATIENT
  Sex: Female

DRUGS (10)
  1. BEVACIZUMAB [Suspect]
     Route: 042
     Dates: start: 20070117, end: 20070117
  2. DOCETAXEL [Suspect]
     Route: 042
     Dates: start: 20070117, end: 20070117
  3. OXALIPLATIN [Suspect]
     Indication: LUNG NEOPLASM MALIGNANT
     Route: 042
     Dates: start: 20070117, end: 20070117
  4. LISINOPRIL [Concomitant]
     Dosage: UNK
     Route: 065
  5. BENADRYL [Concomitant]
     Dosage: UNK
     Route: 065
  6. COMPAZINE [Concomitant]
     Dosage: UNK
     Route: 065
  7. ATIVAN [Concomitant]
     Dosage: UNK
     Route: 065
  8. FLUCONAZOLE [Concomitant]
     Dosage: UNK
     Route: 065
  9. DEXAMETHASONE [Concomitant]
     Dosage: UNK
     Route: 065
  10. SINGULAIR [Concomitant]
     Dosage: UNK
     Route: 065

REACTIONS (8)
  - ABDOMINAL PAIN [None]
  - DEATH [None]
  - LOBAR PNEUMONIA [None]
  - NAUSEA [None]
  - PNEUMONIA [None]
  - PULMONARY OEDEMA [None]
  - SEPSIS [None]
  - VOMITING [None]
